FAERS Safety Report 11764760 (Version 1)
Quarter: 2015Q4

REPORT INFORMATION
  Report Type: Spontaneous
  Country: US (occurrence: US)
  Receive Date: 20151121
  Receipt Date: 20151121
  Transmission Date: 20160304
  Serious: No
  Sender: FDA-Public Use
  Company Number: US-B.I. PHARMACEUTICALS,INC./RIDGEFIELD-2015-BI-62588BP

PATIENT
  Age: 54 Year
  Sex: Male
  Weight: 111 kg

DRUGS (16)
  1. GLIPIZIDE. [Concomitant]
     Active Substance: GLIPIZIDE
     Indication: DIABETES MELLITUS
     Dosage: 20 MG
     Route: 048
     Dates: start: 201505
  2. VENTOLIN [Concomitant]
     Active Substance: ALBUTEROL SULFATE
     Indication: CHRONIC OBSTRUCTIVE PULMONARY DISEASE
     Route: 065
     Dates: start: 2014
  3. METFORMIN [Concomitant]
     Active Substance: METFORMIN HYDROCHLORIDE
     Indication: DIABETES MELLITUS
     Dosage: 200 MG
     Route: 048
     Dates: start: 2005
  4. LISINOPRIL. [Concomitant]
     Active Substance: LISINOPRIL
     Indication: HYPERTENSION
     Dosage: 40 MG
     Route: 048
     Dates: start: 2014
  5. CARDEVILOL [Concomitant]
     Indication: CARDIAC FAILURE CONGESTIVE
     Dosage: 12.5 MG
     Route: 048
     Dates: start: 2010
  6. FUROSEMIDE. [Concomitant]
     Active Substance: FUROSEMIDE
     Indication: CARDIAC FAILURE CONGESTIVE
     Dosage: 20 MG
     Route: 048
     Dates: start: 2005
  7. LOVAZA [Concomitant]
     Active Substance: OMEGA-3-ACID ETHYL ESTERS
     Indication: BLOOD CHOLESTEROL INCREASED
     Dosage: 100 MG
     Route: 048
     Dates: start: 201506
  8. COMBIVENT [Suspect]
     Active Substance: ALBUTEROL SULFATE\IPRATROPIUM BROMIDE
     Indication: CHRONIC OBSTRUCTIVE PULMONARY DISEASE
     Dosage: DOSE PER APPLICATION: 20 MCG / 100 MCG;AND DAILY DOSE:80 MCG/400MCG,
     Route: 055
     Dates: start: 201510
  9. BABY ASPIRIN [Concomitant]
     Active Substance: ASPIRIN
     Indication: ANTIPLATELET THERAPY
     Dosage: 81 MG
     Route: 048
     Dates: start: 2011
  10. LEVEMIR [Concomitant]
     Active Substance: INSULIN DETEMIR
     Indication: DIABETES MELLITUS
     Dosage: 60 U
     Route: 058
     Dates: start: 201503
  11. NEXIUM [Concomitant]
     Active Substance: ESOMEPRAZOLE MAGNESIUM
     Indication: REFLUX GASTRITIS
     Dosage: 40 MG
     Route: 048
     Dates: start: 201503
  12. NOVOLOG [Concomitant]
     Active Substance: INSULIN ASPART
     Indication: DIABETES MELLITUS
     Route: 065
     Dates: start: 201501
  13. SYMBICORT [Concomitant]
     Active Substance: BUDESONIDE\FORMOTEROL FUMARATE DIHYDRATE
     Indication: CHRONIC OBSTRUCTIVE PULMONARY DISEASE
     Dosage: DOSE PER APPLICATION: 80/4.5 MG AND DAILY DOSE 160/9.0 MG, FORMULATION: INHALATION AEROSOL
     Route: 055
     Dates: start: 2014
  14. CRESTOR [Concomitant]
     Active Substance: ROSUVASTATIN CALCIUM
     Indication: BLOOD CHOLESTEROL INCREASED
     Dosage: 40 MG
     Route: 048
     Dates: start: 201506
  15. IBUPROPHEN [Concomitant]
     Active Substance: IBUPROFEN
     Indication: ARTHRALGIA
     Dosage: 800 MG
     Route: 048
     Dates: start: 201506
  16. AMLODIPINE [Concomitant]
     Active Substance: AMLODIPINE BESYLATE
     Indication: HYPERTENSION
     Dosage: 5 MG
     Route: 048
     Dates: start: 2014

REACTIONS (1)
  - Insomnia [Unknown]

NARRATIVE: CASE EVENT DATE: 201510
